FAERS Safety Report 7248375-2 (Version None)
Quarter: 2011Q1

REPORT INFORMATION
  Report Type: 
  Country: None (occurrence: None)
  Receive Date: 20110127
  Receipt Date: 20110118
  Transmission Date: 20110831
  Serious: Yes (Hospitalization)
  Sender: FDA-Public Use
  Company Number: JP-ASTRAZENECA-2010SE50988

PATIENT
  Age: 70 Year
  Sex: Male
  Weight: 63 kg

DRUGS (15)
  1. PHYSIO 140 [Concomitant]
     Route: 041
     Dates: start: 20101020, end: 20101020
  2. ATARAX [Concomitant]
     Indication: ANAESTHETIC PREMEDICATION
     Route: 030
     Dates: start: 20101020, end: 20101020
  3. CEFAMEZIN [Suspect]
     Indication: INFECTION PROPHYLAXIS
     Dosage: 2 G
     Route: 041
     Dates: start: 20101020, end: 20101023
  4. BISOLVON [Concomitant]
     Dosage: 2A
     Route: 040
     Dates: start: 20101020, end: 20101023
  5. PENTAZOCINE LACTATE [Concomitant]
     Indication: ANAESTHETIC PREMEDICATION
     Route: 030
     Dates: start: 20101020, end: 20101020
  6. DIPRIVAN [Suspect]
     Indication: INDUCTION OF ANAESTHESIA
     Route: 042
     Dates: start: 20101020, end: 20101020
  7. DIGILANOGEN C [Suspect]
     Indication: ATRIAL FIBRILLATION
     Dosage: 1A
     Route: 041
     Dates: start: 20101021, end: 20101023
  8. PENTAZOCINE LACTATE [Concomitant]
     Dosage: 1A
     Route: 041
     Dates: start: 20101020, end: 20101102
  9. ATARAX [Concomitant]
     Dosage: 1A
     Route: 041
     Dates: start: 20101020, end: 20101102
  10. WARFARIN SODIUM [Concomitant]
     Indication: ATRIAL FIBRILLATION
     Route: 048
     Dates: start: 20100801, end: 20101017
  11. POTACOL-R [Concomitant]
     Route: 041
     Dates: start: 20101020, end: 20101021
  12. ATROPINE SULFATE HYDRATE [Concomitant]
     Indication: ANAESTHETIC PREMEDICATION
     Route: 030
     Dates: start: 20101020, end: 20101020
  13. SEIBULE [Concomitant]
     Indication: DIABETES MELLITUS
     Route: 048
     Dates: start: 20100801, end: 20101019
  14. HEPARIN [Suspect]
     Indication: THROMBOSIS PROPHYLAXIS
     Dosage: 1A
     Route: 041
     Dates: start: 20101020, end: 20101023
  15. LANTUS [Concomitant]
     Indication: DIABETES MELLITUS
     Route: 058
     Dates: start: 20100801, end: 20101019

REACTIONS (1)
  - JAUNDICE [None]
